FAERS Safety Report 12683647 (Version 3)
Quarter: 2017Q1

REPORT INFORMATION
  Report Type: Spontaneous
  Country: US (occurrence: US)
  Receive Date: 20160825
  Receipt Date: 20170123
  Transmission Date: 20170428
  Serious: Yes (Other)
  Sender: FDA-Public Use
  Company Number: US-PFIZER INC-2016399649

PATIENT
  Sex: Female

DRUGS (4)
  1. SYNTHROID [Concomitant]
     Active Substance: LEVOTHYROXINE SODIUM
     Dosage: 50 UG, 1X/DAY (AM)
  2. AVAPRO [Concomitant]
     Active Substance: IRBESARTAN
     Dosage: 300 MG, 1X/DAY (AT NIGHT)
  3. CELEBREX [Suspect]
     Active Substance: CELECOXIB
     Indication: LIMB INJURY
     Dosage: 200 MG, 1X/DAY (DAILY TOOK IN MORNING)
     Dates: start: 20160722, end: 20160807
  4. ATORVASTATIN [Concomitant]
     Active Substance: ATORVASTATIN
     Dosage: 10 MG, 1X/DAY (NOON)

REACTIONS (7)
  - Urinary tract infection [Unknown]
  - Large intestinal haemorrhage [Recovered/Resolved]
  - Blood urine present [Recovered/Resolved]
  - Cough [Recovered/Resolved]
  - Haematochezia [Recovered/Resolved]
  - Dizziness [Unknown]
  - Nausea [Unknown]

NARRATIVE: CASE EVENT DATE: 20160727
